FAERS Safety Report 5443002-9 (Version None)
Quarter: 2007Q3

REPORT INFORMATION
  Report Type: 
  Country: None (occurrence: None)
  Receive Date: 20070905
  Receipt Date: 20070827
  Transmission Date: 20080115
  Serious: Yes (Other)
  Sender: FDA-Public Use
  Company Number: PHHO2007BR14109

PATIENT
  Age: 64 Year
  Sex: Male

DRUGS (5)
  1. DIOVAN [Suspect]
     Indication: HYPERTENSION
     Dosage: HALF TABLET/DAILY
     Route: 048
  2. DIOVAN [Suspect]
     Dosage: 80 MG, QD
     Route: 048
  3. SELOZOK [Concomitant]
  4. SIMVASTATIN [Concomitant]
  5. EUTHYROX [Concomitant]

REACTIONS (1)
  - BLOOD PRESSURE DECREASED [None]
